FAERS Safety Report 6790145-3 (Version None)
Quarter: 2010Q2

REPORT INFORMATION
  Report Type: 
  Country: None (occurrence: None)
  Receive Date: 20100624
  Receipt Date: 20100610
  Transmission Date: 20101027
  Serious: Yes (Other)
  Sender: FDA-Public Use
  Company Number: PHHY2010US38189

PATIENT
  Sex: Female

DRUGS (2)
  1. CLOZARIL [Suspect]
  2. ANTIBIOTICS [Concomitant]

REACTIONS (3)
  - NEUTROPHIL COUNT INCREASED [None]
  - TOOTH INFECTION [None]
  - WHITE BLOOD CELL COUNT INCREASED [None]
